FAERS Safety Report 5243092-2 (Version None)
Quarter: 2007Q1

REPORT INFORMATION
  Report Type: 
  Country: None (occurrence: None)
  Receive Date: 20070221
  Receipt Date: 20070219
  Transmission Date: 20070707
  Serious: Yes (Other)
  Sender: FDA-Public Use
  Company Number: CH-ROXANE LABORATORIES, INC-2007-DE-01017GD

PATIENT
  Age: 59 Year
  Sex: Female

DRUGS (3)
  1. MORPHINE [Suspect]
     Route: 037
  2. MIDAZOLAM HCL [Concomitant]
     Indication: SEDATIVE THERAPY
     Route: 048
  3. BUPIVACAINE [Concomitant]
     Route: 037

REACTIONS (5)
  - DRUG TOXICITY [None]
  - NAUSEA [None]
  - NYSTAGMUS [None]
  - VISION BLURRED [None]
  - VOMITING [None]
